FAERS Safety Report 8427406-8 (Version None)
Quarter: 2012Q2

REPORT INFORMATION
  Report Type: 
  Country: None (occurrence: None)
  Receive Date: 20120611
  Receipt Date: 20120604
  Transmission Date: 20120825
  Serious: Yes (Disabling, Other)
  Sender: FDA-Public Use
  Company Number: US-MERCK-1103USA00997

PATIENT
  Age: 46 Year
  Sex: Female
  Weight: 47 kg

DRUGS (5)
  1. FOSAMAX PLUS D [Suspect]
     Indication: OSTEOPOROSIS
     Route: 048
     Dates: start: 20060921, end: 20090331
  2. FOSAMAX [Suspect]
     Indication: OSTEOPENIA
     Route: 048
     Dates: start: 20031201, end: 20060922
  3. ALENDRONATE SODIUM [Suspect]
     Indication: OSTEOPENIA
     Route: 048
     Dates: start: 20080430, end: 20100801
  4. FOSAMAX [Suspect]
     Indication: OSTEOPOROSIS
     Route: 048
     Dates: start: 20031201, end: 20060922
  5. ALENDRONATE SODIUM [Suspect]
     Indication: OSTEOPOROSIS
     Route: 048
     Dates: start: 20080430, end: 20100801

REACTIONS (58)
  - STITCH ABSCESS [None]
  - RIB FRACTURE [None]
  - EMPHYSEMA [None]
  - PATELLOFEMORAL PAIN SYNDROME [None]
  - MUSCLE SPASMS [None]
  - BLOOD CHOLESTEROL INCREASED [None]
  - OSTEOMYELITIS [None]
  - ARTHRALGIA [None]
  - JAUNDICE [None]
  - FOOT FRACTURE [None]
  - HAEMORRHOIDS [None]
  - LIGAMENT SPRAIN [None]
  - WEIGHT DECREASED [None]
  - RECTAL HAEMORRHAGE [None]
  - ANGINA PECTORIS [None]
  - BUNION [None]
  - TOOTH FRACTURE [None]
  - TOOTH DISORDER [None]
  - ROSACEA [None]
  - PSORIASIS [None]
  - FIBROMYALGIA [None]
  - DYSPNOEA EXERTIONAL [None]
  - DRY EYE [None]
  - NEURALGIA [None]
  - SLEEP APNOEA SYNDROME [None]
  - PANIC ATTACK [None]
  - FATIGUE [None]
  - TIBIA FRACTURE [None]
  - CORNEAL ABRASION [None]
  - GINGIVAL BLEEDING [None]
  - POST-TRAUMATIC STRESS DISORDER [None]
  - FALL [None]
  - EXOSTOSIS [None]
  - BENIGN NEOPLASM OF THYROID GLAND [None]
  - OSTEONECROSIS OF JAW [None]
  - ANAL INJURY [None]
  - BREAST DISORDER [None]
  - SEXUAL ABUSE [None]
  - ACNE [None]
  - ALVEOLAR OSTEITIS [None]
  - DIARRHOEA [None]
  - DEPRESSION [None]
  - DENTAL CARIES [None]
  - FIBULA FRACTURE [None]
  - ARTHROPATHY [None]
  - JAW DISORDER [None]
  - CHRONIC OBSTRUCTIVE PULMONARY DISEASE [None]
  - CONTUSION [None]
  - LOWER LIMB FRACTURE [None]
  - LIMB ASYMMETRY [None]
  - RECTAL DISCHARGE [None]
  - FIBROUS HISTIOCYTOMA [None]
  - MUSCULOSKELETAL PAIN [None]
  - LIVER DISORDER [None]
  - INSOMNIA [None]
  - MUSCULOSKELETAL CHEST PAIN [None]
  - MASTICATION DISORDER [None]
  - CARTILAGE INJURY [None]
